FAERS Safety Report 17394438 (Version 2)
Quarter: 2020Q4

REPORT INFORMATION
  Report Type: Spontaneous
  Country: FR (occurrence: FR)
  Receive Date: 20200210
  Receipt Date: 20201110
  Transmission Date: 20210113
  Serious: Yes (Other)
  Sender: FDA-Public Use
  Company Number: FR-SA-2020SA030055

PATIENT

DRUGS (5)
  1. COPAXONE [Concomitant]
     Active Substance: GLATIRAMER ACETATE
  2. TYSABRI [Concomitant]
     Active Substance: NATALIZUMAB
  3. LAMICTAL [Concomitant]
     Active Substance: LAMOTRIGINE
  4. DEPAKINE [VALPROIC ACID] [Concomitant]
     Active Substance: VALPROIC ACID
     Indication: EPILEPSY
  5. AUBAGIO [Suspect]
     Active Substance: TERIFLUNOMIDE
     Indication: MULTIPLE SCLEROSIS

REACTIONS (5)
  - Brain injury [Unknown]
  - Back pain [Unknown]
  - Semen analysis abnormal [Not Recovered/Not Resolved]
  - Multiple sclerosis [Unknown]
  - Pregnancy of partner [Unknown]
